FAERS Safety Report 6842821-1 (Version None)
Quarter: 2010Q3

REPORT INFORMATION
  Report Type: 
  Country: None (occurrence: None)
  Receive Date: 20100714
  Receipt Date: 20070806
  Transmission Date: 20110219
  Serious: No
  Sender: FDA-Public Use
  Company Number: US-PFIZER INC-2007066605

PATIENT
  Sex: Female
  Weight: 65.8 kg

DRUGS (8)
  1. CHANTIX [Suspect]
     Indication: EX-TOBACCO USER
     Dates: start: 20070515
  2. EFFEXOR [Concomitant]
  3. PAXIL [Concomitant]
  4. GEODON [Concomitant]
  5. XANAX [Concomitant]
  6. CALCIUM [Concomitant]
  7. ZYRTEC [Concomitant]
  8. ALL OTHER THERAPEUTIC PRODUCTS [Concomitant]

REACTIONS (2)
  - BLOOD CHOLESTEROL INCREASED [None]
  - NAUSEA [None]
